FAERS Safety Report 6043212-6 (Version None)
Quarter: 2009Q1

REPORT INFORMATION
  Report Type: 
  Country: None (occurrence: None)
  Receive Date: 20090119
  Receipt Date: 20080421
  Transmission Date: 20090719
  Serious: No
  Sender: FDA-Public Use
  Company Number: US-ABBOTT-08P-163-0449488-00

PATIENT
  Sex: Female

DRUGS (1)
  1. CLARITHROMYCIN ORAL SUSPENSION 250MG/5ML [Suspect]
     Indication: DRUG USE FOR UNKNOWN INDICATION
     Dates: start: 20080420

REACTIONS (1)
  - DYSGEUSIA [None]
